FAERS Safety Report 6121436-7 (Version None)
Quarter: 2009Q1

REPORT INFORMATION
  Report Type: 
  Country: None (occurrence: None)
  Receive Date: 20090317
  Receipt Date: 20090309
  Transmission Date: 20090719
  Serious: Yes (Other)
  Sender: FDA-Public Use
  Company Number: PHHY2009CR07652

PATIENT
  Age: 66 Year
  Sex: Female

DRUGS (1)
  1. DIOVAN HCT [Suspect]
     Dosage: 320/25 MG, UNK

REACTIONS (13)
  - ANXIETY [None]
  - BLOOD PRESSURE FLUCTUATION [None]
  - DIZZINESS [None]
  - EATING DISORDER [None]
  - FEELING ABNORMAL [None]
  - HYPOTENSION [None]
  - MEMORY IMPAIRMENT [None]
  - PALLOR [None]
  - PANIC ATTACK [None]
  - PERIPHERAL COLDNESS [None]
  - STRESS [None]
  - TEARFULNESS [None]
  - TREMOR [None]
